FAERS Safety Report 8110026 (Version 2)
Quarter: 2013Q2

REPORT INFORMATION
  Report Type: Spontaneous
  Country: US (occurrence: US)
  Receive Date: 20110829
  Receipt Date: 20130508
  Transmission Date: 20140414
  Serious: No
  Sender: FDA-Public Use
  Company Number: US-BIOGENIDEC-2011BI032094

PATIENT
  Sex: Male

DRUGS (3)
  1. TYSABRI [Suspect]
     Indication: MULTIPLE SCLEROSIS
     Route: 042
     Dates: start: 20070705, end: 20080624
  2. TYSABRI [Suspect]
     Indication: MULTIPLE SCLEROSIS
     Route: 042
     Dates: start: 20100111, end: 20121023
  3. AVONEX [Concomitant]
     Indication: MULTIPLE SCLEROSIS
     Route: 030

REACTIONS (3)
  - Visual impairment [Not Recovered/Not Resolved]
  - Memory impairment [Not Recovered/Not Resolved]
  - Optic nerve disorder [Not Recovered/Not Resolved]
